FAERS Safety Report 14209258 (Version 1)
Quarter: 2017Q4

REPORT INFORMATION
  Report Type: Spontaneous
  Country: US (occurrence: US)
  Receive Date: 20171121
  Receipt Date: 20171121
  Transmission Date: 20180321
  Serious: No
  Sender: FDA-Public Use
  Company Number: US-JNJFOC-20170928185

PATIENT
  Age: 26 Year
  Sex: Female
  Weight: 63.5 kg

DRUGS (3)
  1. METHOTREXATE. [Concomitant]
     Active Substance: METHOTREXATE
     Indication: UVEITIS
     Route: 048
     Dates: start: 201204
  2. SIMPONI [Suspect]
     Active Substance: GOLIMUMAB
     Indication: UVEITIS
     Route: 058
     Dates: start: 201611
  3. FOLIC ACID. [Concomitant]
     Active Substance: FOLIC ACID
     Indication: UVEITIS
     Route: 048
     Dates: start: 201204

REACTIONS (4)
  - Product use in unapproved indication [Unknown]
  - Drug dose omission [Unknown]
  - Product storage error [Unknown]
  - Off label use [Unknown]

NARRATIVE: CASE EVENT DATE: 201611
